FAERS Safety Report 14205775 (Version 3)
Quarter: 2018Q3

REPORT INFORMATION
  Report Type: Spontaneous
  Country: IT (occurrence: IT)
  Receive Date: 20171120
  Receipt Date: 20180718
  Transmission Date: 20181010
  Serious: Yes (Other)
  Sender: FDA-Public Use
  Company Number: IT-MYLANLABS-2017M1072983

PATIENT
  Age: 16 Year
  Sex: Female

DRUGS (3)
  1. IMATINIB [Suspect]
     Active Substance: IMATINIB
     Indication: MORPHOEA
     Dosage: 200 MG, UNK
  2. METHOTREXATE. [Suspect]
     Active Substance: METHOTREXATE
     Indication: MORPHOEA
     Dosage: 15 MG/M2, QD
  3. PREDNISONE. [Suspect]
     Active Substance: PREDNISONE
     Indication: MORPHOEA
     Dosage: 2 MG/KG, UNK

REACTIONS (5)
  - Growth retardation [Unknown]
  - Disease progression [Unknown]
  - Morphoea [Unknown]
  - Therapy non-responder [Unknown]
  - Product use in unapproved indication [Unknown]
